FAERS Safety Report 8575132-7 (Version None)
Quarter: 2012Q3

REPORT INFORMATION
  Report Type: 
  Country: None (occurrence: None)
  Receive Date: 20120807
  Receipt Date: 20120727
  Transmission Date: 20120928
  Serious: Yes (Other)
  Sender: FDA-Public Use
  Company Number: JP-PFIZER INC-2012189132

PATIENT
  Age: 57 Year
  Sex: Male

DRUGS (6)
  1. LIPITOR [Suspect]
     Dosage: 5 MG DAILY
     Route: 048
     Dates: start: 20081108
  2. NICORANDIL [Concomitant]
     Dosage: UNK
     Dates: start: 20080804
  3. MAGNESIUM OXIDE [Concomitant]
     Dosage: UNK
     Dates: start: 20080802
  4. PERINDOPRIL ERBUMINE [Concomitant]
     Dosage: UNK
     Dates: start: 20080803, end: 20080819
  5. LIPITOR [Suspect]
     Indication: ANGINA UNSTABLE
     Dosage: 5 MG DAILY
     Route: 048
     Dates: start: 20080803, end: 20080826
  6. ASPIRIN [Concomitant]
     Dosage: UNK
     Dates: start: 20080802

REACTIONS (1)
  - VENTRICULAR FIBRILLATION [None]
